FAERS Safety Report 8147603-9 (Version None)
Quarter: 2012Q1

REPORT INFORMATION
  Report Type: 
  Country: None (occurrence: None)
  Receive Date: 20120218
  Receipt Date: 20101129
  Transmission Date: 20120608
  Serious: Yes (Hospitalization, Other)
  Sender: FDA-Public Use
  Company Number: AR-AMGEN-ARGCT2010008355

PATIENT
  Age: 79 Year
  Sex: Male

DRUGS (1)
  1. ENBREL [Suspect]
     Indication: PSORIATIC ARTHROPATHY
     Dosage: 50 MG, WEEKLY
     Route: 058
     Dates: start: 20070627

REACTIONS (6)
  - PARKINSON'S DISEASE [None]
  - INCORRECT DOSE ADMINISTERED [None]
  - RASH [None]
  - MOVEMENT DISORDER [None]
  - CARDIAC FAILURE [None]
  - BLOOD PRESSURE INCREASED [None]
